FAERS Safety Report 4821578-X (Version None)
Quarter: 2005Q4

REPORT INFORMATION
  Report Type: 
  Country: None (occurrence: None)
  Receive Date: 20051103
  Receipt Date: 20051020
  Transmission Date: 20060501
  Serious: No
  Sender: FDA-Public Use
  Company Number: US016254

PATIENT
  Age: 24 Month
  Sex: Female

DRUGS (1)
  1. ACTIQ [Suspect]
     Dosage: 1200 UG ONCE BUCCAL
     Route: 002
     Dates: start: 20051020, end: 20051020

REACTIONS (1)
  - ACCIDENTAL DRUG INTAKE BY CHILD [None]
